FAERS Safety Report 4659516-5 (Version None)
Quarter: 2005Q2

REPORT INFORMATION
  Report Type: 
  Country: None (occurrence: None)
  Receive Date: 20050511
  Receipt Date: 20050430
  Transmission Date: 20051028
  Serious: Yes (Other)
  Sender: FDA-Public Use
  Company Number: 2005068087

PATIENT
  Sex: Male

DRUGS (2)
  1. LISTERINE ANTISEPTIC MOUTHWASH (MENTHOL, METHYL SALICYLATE, EUCALYPTOL [Suspect]
     Indication: INTENTIONAL MISUSE
     Dosage: 1.5 LITER BOTTLE WEEKLY, ORAL
     Route: 048
  2. ETHANOL (ETHANOL) [Suspect]
     Indication: ALCOHOLISM
     Dosage: ORAL
     Route: 048

REACTIONS (2)
  - ALCOHOLISM [None]
  - INTENTIONAL MISUSE [None]
